FAERS Safety Report 10548458 (Version 1)
Quarter: 2014Q4

REPORT INFORMATION
  Report Type: Spontaneous
  Country: US (occurrence: None)
  Receive Date: 20141027
  Receipt Date: 20141027
  Transmission Date: 20150529
  Serious: Yes (Hospitalization, Disabling)
  Sender: FDA-Public Use
  Company Number: None

PATIENT
  Age: 62 Year
  Sex: Male
  Weight: 90.72 kg

DRUGS (2)
  1. XGEVA [Suspect]
     Active Substance: DENOSUMAB
     Indication: METASTASES TO BONE
     Dosage: 120 MG SUBCUTANEOUS ON?EVERY 4 WEEKS?GIVEN INTO/UNDER THE SKIN
     Route: 058
     Dates: start: 20140716
  2. XGEVA [Suspect]
     Active Substance: DENOSUMAB
     Indication: PROPHYLAXIS
     Dosage: 120 MG SUBCUTANEOUS ON?EVERY 4 WEEKS?GIVEN INTO/UNDER THE SKIN
     Route: 058
     Dates: start: 20140716

REACTIONS (4)
  - Fall [None]
  - Lower limb fracture [None]
  - Femoral neck fracture [None]
  - Procedural complication [None]

NARRATIVE: CASE EVENT DATE: 20140902
